FAERS Safety Report 8188187-9 (Version None)
Quarter: 2012Q1

REPORT INFORMATION
  Report Type: 
  Country: None (occurrence: None)
  Receive Date: 20120306
  Receipt Date: 20120227
  Transmission Date: 20120608
  Serious: Yes (Other)
  Sender: FDA-Public Use
  Company Number: IT-JNJFOC-20120214673

PATIENT

DRUGS (3)
  1. ETOPOSIDE [Suspect]
     Indication: EWING'S SARCOMA
     Route: 065
  2. DOXORUBICIN HCL [Suspect]
     Indication: EWING'S SARCOMA
     Route: 042
  3. RADIOTHERAPY [Suspect]
     Indication: EWING'S SARCOMA
     Route: 065

REACTIONS (1)
  - MYELODYSPLASTIC SYNDROME [None]
